FAERS Safety Report 5945366-6 (Version None)
Quarter: 2008Q4

REPORT INFORMATION
  Report Type: 
  Country: None (occurrence: None)
  Receive Date: 20081107
  Receipt Date: 20081105
  Transmission Date: 20090506
  Serious: Yes (Other)
  Sender: FDA-Public Use
  Company Number: US-ASTRAZENECA-2008UW20298

PATIENT
  Age: 87 Year
  Sex: Female

DRUGS (5)
  1. NEXIUM [Suspect]
     Indication: GASTROOESOPHAGEAL REFLUX DISEASE
     Route: 048
  2. NEXIUM [Suspect]
     Dosage: 40 MG EVERY OTHER DAY
     Route: 048
  3. NEXIUM [Suspect]
     Dosage: 40 MG EVERY TWO DAYS
     Route: 048
  4. NEXIUM [Suspect]
     Dosage: 40 MG EVERY THIRD DAY
     Route: 048
     Dates: start: 20060101
  5. NEXIUM [Suspect]
     Dosage: EVERY DAY
     Route: 048

REACTIONS (6)
  - AORTIC STENOSIS [None]
  - ASTHMA [None]
  - DRUG INEFFECTIVE [None]
  - HYPERSENSITIVITY [None]
  - OROPHARYNGEAL PAIN [None]
  - OSTEOARTHRITIS [None]
